FAERS Safety Report 16077092 (Version 1)
Quarter: 2019Q1

REPORT INFORMATION
  Report Type: Spontaneous
  Country: GB (occurrence: GB)
  Receive Date: 20190315
  Receipt Date: 20190315
  Transmission Date: 20190418
  Serious: Yes (Other)
  Sender: FDA-Public Use
  Company Number: GB-TEVA-2019-GB-1023875

PATIENT
  Sex: Female

DRUGS (1)
  1. ANTI-FUNGAL SKIN CREAM (CLOTRIMAZOLE) [Suspect]
     Active Substance: CLOTRIMAZOLE
     Indication: RASH
     Route: 065

REACTIONS (6)
  - Wrong drug [Unknown]
  - Adverse event [Unknown]
  - Blood blister [Unknown]
  - Condition aggravated [Unknown]
  - Blister rupture [Unknown]
  - Rash vesicular [Unknown]
